FAERS Safety Report 12420073 (Version 1)
Quarter: 2016Q2

REPORT INFORMATION
  Report Type: Spontaneous
  Country: US (occurrence: US)
  Receive Date: 20160531
  Receipt Date: 20160531
  Transmission Date: 20160815
  Serious: No
  Sender: FDA-Public Use
  Company Number: US-TARO-2015TAR00813

PATIENT
  Age: 64 Year
  Sex: Female
  Weight: 68.27 kg

DRUGS (4)
  1. BETAMETHASONE DIPROPIONATE CREAM USP 0.05% [Suspect]
     Active Substance: BETAMETHASONE DIPROPIONATE
     Indication: INTERTRIGO
     Dosage: SMALL AMOUNT, 2X/DAY MIXED WITH ECONAZOLE NITRATE CREAM 1% FOR 4-5 DAYS
     Route: 061
     Dates: start: 201505, end: 201505
  2. CLOTRIMAZOLE/BETAMETHASONE DIPROPIONATE CREAM USP 1%/0.05% [Concomitant]
     Active Substance: BETAMETHASONE DIPROPIONATE\CLOTRIMAZOLE
     Dosage: SMALL AMOUNT, 2X/DAY, 5 DAYS ON AND 5 DAYS OFF
     Route: 061
     Dates: start: 201501, end: 201505
  3. KLONOPIN [Concomitant]
     Active Substance: CLONAZEPAM
     Dosage: 0.5 MG, 2-3X/DAY
  4. ECONAZOLE NITRATE CREAM (IGI LABS) [Suspect]
     Active Substance: ECONAZOLE NITRATE
     Indication: INTERTRIGO
     Dosage: SMALL AMOUNT MIXED WITH  BETAMETHASONE DIPROPIONATE CREAM, 2X/DAY FOR 4-5 DAYS
     Route: 061
     Dates: start: 201505

REACTIONS (2)
  - Anxiety [Recovering/Resolving]
  - Blood blister [Recovering/Resolving]

NARRATIVE: CASE EVENT DATE: 201507
